FAERS Safety Report 8376656-8 (Version None)
Quarter: 2012Q2

REPORT INFORMATION
  Report Type: 
  Country: None (occurrence: None)
  Receive Date: 20120522
  Receipt Date: 20120509
  Transmission Date: 20120825
  Serious: Yes (Other)
  Sender: FDA-Public Use
  Company Number: JP-UCBSA-057168

PATIENT
  Age: 80 Year
  Sex: Female

DRUGS (4)
  1. XYZAL [Suspect]
     Route: 048
  2. ZOLPIDEM [Concomitant]
     Route: 048
  3. WARFARIN SODIUM [Concomitant]
     Dosage: DOSAGE FORM: POR
     Route: 048
  4. ESTAZOLAM [Concomitant]
     Dosage: DOSAGE FORM: POR
     Route: 048

REACTIONS (1)
  - HAEMORRHAGIC DIATHESIS [None]
